FAERS Safety Report 8567826-4 (Version None)
Quarter: 2012Q3

REPORT INFORMATION
  Report Type: 
  Country: None (occurrence: None)
  Receive Date: 20120803
  Receipt Date: 20120730
  Transmission Date: 20120928
  Serious: Yes (Life-Threatening)
  Sender: FDA-Public Use
  Company Number: DK-ASTRAZENECA-2012SE53805

PATIENT
  Age: 74 Year
  Sex: Male
  Weight: 60 kg

DRUGS (5)
  1. METOPROLOL SUCCINATE [Concomitant]
     Route: 048
  2. LANSOPRAZOLE [Concomitant]
  3. BRILINTA [Suspect]
     Indication: THROMBOSIS PROPHYLAXIS
     Route: 048
     Dates: start: 20120201, end: 20120701
  4. SIMVASTATIN [Concomitant]
  5. ASPIRIN [Concomitant]

REACTIONS (4)
  - MELAENA [None]
  - SMALL INTESTINE ULCER [None]
  - SMALL INTESTINAL HAEMORRHAGE [None]
  - SYNCOPE [None]
